FAERS Safety Report 25305179 (Version 1)
Quarter: 2025Q2

REPORT INFORMATION
  Report Type: Spontaneous
  Country: US (occurrence: None)
  Receive Date: 20250512
  Receipt Date: 20250512
  Transmission Date: 20250716
  Serious: Yes (Other)
  Sender: FDA-CTU
  Company Number: None

PATIENT
  Age: 13 Year
  Sex: Female

DRUGS (2)
  1. MYCOPHENOLIC ACID [Suspect]
     Active Substance: MYCOPHENOLIC ACID
     Indication: Systemic lupus erythematosus
     Dosage: TAKE ONE AND ONE-HALF TABLET (750 MG TOTAL) BY MOUTH TWICE DAILY
     Route: 048
  2. JYNARQUE [Suspect]
     Active Substance: TOLVAPTAN

REACTIONS (2)
  - Thirst [None]
  - Pollakiuria [None]

NARRATIVE: CASE EVENT DATE: 20250506
